FAERS Safety Report 9249970 (Version 1)
Quarter: 2013Q2

REPORT INFORMATION
  Report Type: Spontaneous
  Country: US (occurrence: US)
  Receive Date: 20130424
  Receipt Date: 20130424
  Transmission Date: 20140414
  Serious: Yes (Other)
  Sender: FDA-Public Use
  Company Number: US-AMGEN-USASP2013028096

PATIENT
  Age: 13 Year
  Sex: Male

DRUGS (9)
  1. ENBREL [Suspect]
     Indication: JUVENILE IDIOPATHIC ARTHRITIS
     Dosage: 25 MG, 2 TIMES/WK
     Dates: start: 20130204
  2. METHOTREXATE [Concomitant]
     Dosage: 17.5 MG, QWK
  3. CELEBREX [Concomitant]
     Dosage: 50 MG, BID
  4. VENTOLIN                           /00139501/ [Concomitant]
     Dosage: UNK
  5. FLONASE [Concomitant]
     Dosage: UNK
  6. FOLIC ACID [Concomitant]
     Dosage: 1 MG, UNK
  7. NEXIUM                             /01479302/ [Concomitant]
     Dosage: 40 MG, QD
  8. STRATTERA [Concomitant]
     Dosage: 60 MG, QD
  9. LEUKOVORIN [Concomitant]
     Dosage: 5 MG, QWK

REACTIONS (4)
  - Migraine [Unknown]
  - Intracranial pressure increased [Unknown]
  - Conversion disorder [Unknown]
  - Gait disturbance [Recovered/Resolved]
